FAERS Safety Report 4829389-6 (Version None)
Quarter: 2005Q4

REPORT INFORMATION
  Report Type: 
  Country: None (occurrence: None)
  Receive Date: 20051028
  Receipt Date: 20050405
  Transmission Date: 20060501
  Serious: No
  Sender: FDA-Public Use
  Company Number: US124831

PATIENT
  Age: 55 Year
  Sex: Female

DRUGS (2)
  1. SENSIPAR [Suspect]
     Indication: HYPERPARATHYROIDISM SECONDARY
     Dosage: 90 MG, PO
     Route: 048
     Dates: start: 20040625
  2. CALCITRIOL [Concomitant]

REACTIONS (3)
  - BLOOD PARATHYROID HORMONE INCREASED [None]
  - HYPOAESTHESIA [None]
  - HYPOCALCAEMIA [None]
